FAERS Safety Report 12186581 (Version 2)
Quarter: 2016Q4

REPORT INFORMATION
  Report Type: Spontaneous
  Country: FR (occurrence: FR)
  Receive Date: 20160317
  Receipt Date: 20161213
  Transmission Date: 20170207
  Serious: Yes (Hospitalization)
  Sender: FDA-Public Use
  Company Number: FR-FRESENIUS KABI-FK201601301

PATIENT
  Age: 46 Year
  Sex: Female

DRUGS (6)
  1. CLINDAMYCIN KABI (NOT SPECIFIED) [Suspect]
     Active Substance: CLINDAMYCIN PHOSPHATE
     Indication: PRODUCT USED FOR UNKNOWN INDICATION
     Route: 042
     Dates: start: 20151020, end: 20151020
  2. TOPALGIC [Suspect]
     Active Substance: TRAMADOL
     Indication: PERIOPERATIVE ANALGESIA
     Route: 042
     Dates: start: 20151020, end: 20151020
  3. BUPIVACAINE. [Suspect]
     Active Substance: BUPIVACAINE
     Indication: SPINAL ANAESTHESIA
     Route: 037
     Dates: start: 20151020, end: 20151020
  4. DALACINE [Suspect]
     Active Substance: CLINDAMYCIN HYDROCHLORIDE
     Indication: PERIOPERATIVE ANALGESIA
     Route: 065
     Dates: start: 2015, end: 2015
  5. SUFENTANIL [Suspect]
     Active Substance: SUFENTANIL
     Indication: SPINAL ANAESTHESIA
     Route: 037
     Dates: start: 20151020, end: 20151020
  6. PERFALGAN [Suspect]
     Active Substance: ACETAMINOPHEN
     Indication: PERIOPERATIVE ANALGESIA
     Route: 042
     Dates: start: 20151020, end: 20151020

REACTIONS (2)
  - Cholestasis [Recovered/Resolved]
  - Hepatocellular injury [Recovered/Resolved]

NARRATIVE: CASE EVENT DATE: 20151105
